FAERS Safety Report 13446321 (Version 1)
Quarter: 2017Q2

REPORT INFORMATION
  Report Type: Spontaneous
  Country: TR (occurrence: TR)
  Receive Date: 20170417
  Receipt Date: 20170417
  Transmission Date: 20170830
  Serious: Yes (Other)
  Sender: FDA-Public Use
  Company Number: TR-SUN PHARMACEUTICAL INDUSTRIES LTD-2017R1-138434

PATIENT
  Age: 39 Year
  Sex: Male

DRUGS (5)
  1. PALONOSETRON [Suspect]
     Active Substance: PALONOSETRON
     Indication: HODGKIN^S DISEASE
     Dosage: CYCLICAL
     Route: 065
  2. VINCRISTINE [Suspect]
     Active Substance: VINCRISTINE
     Indication: HODGKIN^S DISEASE
     Dosage: CYCLICAL
     Route: 065
  3. CYCLOPHOSPHAMIDE. [Suspect]
     Active Substance: CYCLOPHOSPHAMIDE
     Indication: HODGKIN^S DISEASE
     Dosage: CYCLICAL
     Route: 065
  4. DOXORUBICIN [Suspect]
     Active Substance: DOXORUBICIN
     Indication: HODGKIN^S DISEASE
     Dosage: CYCLICAL
     Route: 065
  5. ETOPOSIDE. [Suspect]
     Active Substance: ETOPOSIDE
     Indication: HODGKIN^S DISEASE
     Dosage: CYCLICAL
     Route: 065

REACTIONS (2)
  - Arthralgia [Recovering/Resolving]
  - Rheumatic disorder [Recovering/Resolving]
